FAERS Safety Report 23742330 (Version 2)
Quarter: 2024Q2

REPORT INFORMATION
  Report Type: Spontaneous
  Country: US (occurrence: US)
  Receive Date: 20240415
  Receipt Date: 20240513
  Transmission Date: 20240716
  Serious: No
  Sender: FDA-Public Use
  Company Number: US-PFIZER INC-202400084618

PATIENT
  Age: 62 Year
  Sex: Female
  Weight: 68.036 kg

DRUGS (1)
  1. PREMARIN [Suspect]
     Active Substance: ESTROGENS, CONJUGATED
     Indication: Prolapse
     Dosage: ONCE EVERY OTHER DAY. SO, LET^S SAY TWO TO THREE TIMES PER WEEK
     Dates: start: 20210701

REACTIONS (7)
  - Breast pain [Unknown]
  - Urinary tract pain [Unknown]
  - Arthralgia [Not Recovered/Not Resolved]
  - Abdominal distension [Not Recovered/Not Resolved]
  - Fatigue [Unknown]
  - Off label use [Unknown]
  - Drug ineffective for unapproved indication [Unknown]

NARRATIVE: CASE EVENT DATE: 20210701
